FAERS Safety Report 15735764 (Version 2)
Quarter: 2018Q4

REPORT INFORMATION
  Report Type: Spontaneous
  Country: JP (occurrence: JP)
  Receive Date: 20181218
  Receipt Date: 20181231
  Transmission Date: 20190205
  Serious: Yes (Other)
  Sender: FDA-Public Use
  Company Number: JP-PFIZER INC-2018515801

PATIENT
  Age: 14 Year
  Sex: Male

DRUGS (13)
  1. CISPLATIN. [Suspect]
     Active Substance: CISPLATIN
     Indication: GERM CELL CANCER
     Dosage: 400 MG/M2, CYCLIC (HIGH-DOSE, THREE CYCLES)PREOPERATIVELY
  2. IFOSFAMIDE. [Suspect]
     Active Substance: IFOSFAMIDE
     Indication: GERM CELL CANCER
     Dosage: UNK, CYCLIC (18 G/M?,ONE CYCLE, HIGH-DOSE)PREOPERATIVELY
  3. ETOPOSIDE. [Suspect]
     Active Substance: ETOPOSIDE
     Indication: GERM CELL CANCER
     Dosage: 5100 MG/M2, CYCLIC (HIGH-DOSE, THREE CYCLES)PREOPERATIVELY
  4. CARBOPLATIN. [Suspect]
     Active Substance: CARBOPLATIN
     Indication: GERM CELL CANCER
     Dosage: 4500 MG/M2, CYCLIC (HIGH DOSE, ONE CYCLE), PREOPERATIVELY
  5. BLEOMYCIN [Suspect]
     Active Substance: BLEOMYCIN SULFATE
     Indication: GERM CELL CANCER
     Dosage: 45 MG/M2, CYCLIC, (HIGH-DOSE, THREE CYCLES),PREOPERATIVELY
  6. PACLITAXEL. [Suspect]
     Active Substance: PACLITAXEL
     Indication: MALIGNANT MEDIASTINAL NEOPLASM
     Dosage: 650 MG/M2, CYCLIC (TWO CYCLES, HIGH DOSE)POSTOPERATIVELY
  7. IFOSFAMIDE. [Suspect]
     Active Substance: IFOSFAMIDE
     Indication: MALIGNANT MEDIASTINAL NEOPLASM
     Dosage: UNK, CYCLIC (18 G/M?,ONE CYCLE, HIGH-DOSE,TWO CYCLES)POSTOPERATIVELY
  8. BLEOMYCIN [Suspect]
     Active Substance: BLEOMYCIN SULFATE
     Indication: MALIGNANT MEDIASTINAL NEOPLASM
  9. CISPLATIN. [Suspect]
     Active Substance: CISPLATIN
     Indication: MALIGNANT MEDIASTINAL NEOPLASM
     Dosage: 400 MG/M2, CYCLIC (HIGH-DOSE, ONE CYCLE)PREOPERATIVELY
  10. PACLITAXEL. [Suspect]
     Active Substance: PACLITAXEL
     Indication: GERM CELL CANCER
     Dosage: 650 MG/M2, CYCLIC (ONE CYCLE, HIGH DOSE)PREOPERATIVELY
  11. ETOPOSIDE. [Suspect]
     Active Substance: ETOPOSIDE
     Indication: MALIGNANT MEDIASTINAL NEOPLASM
     Dosage: 5100 MG/M2, CYCLIC (HIGH-DOSE, ONE CYCLE)PREOPERATIVELY
  12. ETOPOSIDE. [Suspect]
     Active Substance: ETOPOSIDE
     Dosage: 5100 MG/M2, CYCLIC (HIGH-DOSE, POSTOPERATIVELY, TWO CYCLES)
  13. CARBOPLATIN. [Suspect]
     Active Substance: CARBOPLATIN
     Indication: MALIGNANT MEDIASTINAL NEOPLASM
     Dosage: 4500 MG/M2, CYCLIC (HIGH DOSE, POSTOPERATIVELY, TWO CYCLES)

REACTIONS (2)
  - Osteosarcoma [Recovering/Resolving]
  - Second primary malignancy [Recovering/Resolving]
